FAERS Safety Report 11643229 (Version 1)
Quarter: 2015Q4

REPORT INFORMATION
  Report Type: Spontaneous
  Country: US (occurrence: US)
  Receive Date: 20151020
  Receipt Date: 20151020
  Transmission Date: 20160304
  Serious: No
  Sender: FDA-Public Use
  Company Number: PHHY2015US130546

PATIENT
  Age: 45 Year
  Sex: Female

DRUGS (3)
  1. TYKERB [Suspect]
     Active Substance: LAPATINIB DITOSYLATE
     Indication: NEOPLASM MALIGNANT
     Dosage: 1250 MG, QD
     Route: 048
     Dates: start: 20150205
  2. TEMODAR [Concomitant]
     Active Substance: TEMOZOLOMIDE
     Indication: PRODUCT USED FOR UNKNOWN INDICATION
     Route: 065
  3. AVASTIN [Suspect]
     Active Substance: BEVACIZUMAB
     Indication: PRODUCT USED FOR UNKNOWN INDICATION
     Dosage: UNK
     Route: 065
     Dates: start: 20150701

REACTIONS (5)
  - Diarrhoea [Unknown]
  - Peripheral swelling [Unknown]
  - Blister [Unknown]
  - Abdominal discomfort [Unknown]
  - Epistaxis [Unknown]

NARRATIVE: CASE EVENT DATE: 20150701
